FAERS Safety Report 10435111 (Version 1)
Quarter: 2014Q3

REPORT INFORMATION
  Report Type: Spontaneous
  Country: US (occurrence: US)
  Receive Date: 20140906
  Receipt Date: 20140906
  Transmission Date: 20150326
  Serious: Yes (Death, Congenital Anomaly, Other)
  Sender: FDA-Public Use
  Company Number: US-ABBVIE-14P-163-1279457-00

PATIENT
  Sex: Female

DRUGS (1)
  1. DEPAKOTE [Suspect]
     Active Substance: DIVALPROEX SODIUM
     Indication: MATERNAL EXPOSURE TIMING UNSPECIFIED
     Route: 064

REACTIONS (12)
  - Multiple cardiac defects [Unknown]
  - Anhedonia [Unknown]
  - Emotional distress [Unknown]
  - Neural tube defect [Unknown]
  - Congenital anomaly [Unknown]
  - Pain [Unknown]
  - Deformity [Unknown]
  - Physical disability [Unknown]
  - Death [Fatal]
  - Foetal exposure during pregnancy [Unknown]
  - Multiple injuries [Unknown]
  - Spina bifida [Unknown]

NARRATIVE: CASE EVENT DATE: 2004
